FAERS Safety Report 8115646-7 (Version None)
Quarter: 2012Q1

REPORT INFORMATION
  Report Type: 
  Country: None (occurrence: None)
  Receive Date: 20120206
  Receipt Date: 20120201
  Transmission Date: 20120608
  Serious: No
  Sender: FDA-Public Use
  Company Number: US-BAYER-2012-011198

PATIENT

DRUGS (4)
  1. BISMUTH SUBSALICYLATE [Concomitant]
  2. ALEVE (CAPLET) [Suspect]
     Route: 048
  3. CALCIUM CARBONATE [Concomitant]
     Route: 048
  4. IMODIUM [Concomitant]

REACTIONS (1)
  - ABDOMINAL PAIN UPPER [None]
